FAERS Safety Report 5600053-9 (Version None)
Quarter: 2007Q4

REPORT INFORMATION
  Report Type: 
  Country: None (occurrence: None)
  Receive Date: 20071226
  Receipt Date: 20070503
  Transmission Date: 20080405
  Serious: Yes (Other)
  Sender: FDA-Public Use
  Company Number: 2007-0012020

PATIENT
  Age: 46 Year
  Sex: Male

DRUGS (4)
  1. VIREAD [Suspect]
  2. ABACAVIR [Concomitant]
  3. DARUNAVIR (DARUNAVIR) [Concomitant]
  4. RITONAVIR (RITONAVIR) [Concomitant]

REACTIONS (1)
  - FANCONI SYNDROME ACQUIRED [None]
